FAERS Safety Report 5147403-8 (Version None)
Quarter: 2006Q4

REPORT INFORMATION
  Report Type: 
  Country: None (occurrence: None)
  Receive Date: 20061106
  Receipt Date: 20061025
  Transmission Date: 20070319
  Serious: Yes (Other)
  Sender: FDA-Public Use
  Company Number: 2006132893

PATIENT

DRUGS (1)
  1. BEXTRA [Suspect]
     Dosage: ORAL
     Route: 048

REACTIONS (2)
  - CEREBROVASCULAR ACCIDENT [None]
  - MYOCARDIAL INFARCTION [None]
